FAERS Safety Report 25625859 (Version 3)
Quarter: 2025Q3

REPORT INFORMATION
  Report Type: Spontaneous
  Country: AR (occurrence: AR)
  Receive Date: 20250731
  Receipt Date: 20250906
  Transmission Date: 20251020
  Serious: Yes (Other)
  Sender: ROCHE
  Company Number: AR-002147023-NVSC2024AR242112

PATIENT
  Sex: Female

DRUGS (6)
  1. XOLAIR [Suspect]
     Active Substance: OMALIZUMAB
     Indication: Chronic spontaneous urticaria
     Dosage: 300 MILLIGRAM PER MILLILITRE
     Route: 058
     Dates: start: 20241004
  2. XOLAIR [Suspect]
     Active Substance: OMALIZUMAB
     Dosage: 150 MILLIGRAM PER MILLILITRE
     Route: 058
     Dates: start: 202412
  3. XOLAIR [Suspect]
     Active Substance: OMALIZUMAB
     Route: 065
     Dates: end: 202501
  4. XOLAIR [Suspect]
     Active Substance: OMALIZUMAB
     Dosage: 300 MILLIGRAM PER MILLILITRE
     Route: 065
     Dates: start: 202501
  5. XOLAIR [Suspect]
     Active Substance: OMALIZUMAB
     Route: 058
     Dates: start: 202503
  6. XOLAIR [Suspect]
     Active Substance: OMALIZUMAB
     Route: 065

REACTIONS (4)
  - Angioedema [Recovered/Resolved]
  - Urticaria [Recovering/Resolving]
  - Drug ineffective [Unknown]
  - Inappropriate schedule of product administration [Unknown]

NARRATIVE: CASE EVENT DATE: 20250601
